FAERS Safety Report 17748568 (Version 1)
Quarter: 2020Q2

REPORT INFORMATION
  Report Type: Spontaneous
  Country: FR (occurrence: FR)
  Receive Date: 20200505
  Receipt Date: 20200505
  Transmission Date: 20200714
  Serious: Yes (Death, Hospitalization)
  Sender: FDA-Public Use
  Company Number: NVSC2020FR041950

PATIENT
  Age: 66 Year
  Sex: Female
  Weight: 85 kg

DRUGS (1)
  1. VANCOMYCINE SANDOZ 125 MG, POUDRE POUR SOLUTION POUR PERFUSION [Suspect]
     Active Substance: VANCOMYCIN HYDROCHLORIDE
     Indication: PRODUCT USED FOR UNKNOWN INDICATION
     Dosage: 100 MG
     Route: 041
     Dates: start: 20191013

REACTIONS (8)
  - Wrong patient received product [Recovered/Resolved]
  - Product administration error [Recovered/Resolved]
  - Incorrect route of product administration [Unknown]
  - Metabolic acidosis [Unknown]
  - Polyuria [Unknown]
  - Sedation [Unknown]
  - Wrong technique in product usage process [Unknown]
  - Renal failure [Fatal]

NARRATIVE: CASE EVENT DATE: 20191013
